FAERS Safety Report 12983039 (Version 1)
Quarter: 2016Q4

REPORT INFORMATION
  Report Type: Spontaneous
  Country: US (occurrence: US)
  Receive Date: 20161129
  Receipt Date: 20161129
  Transmission Date: 20170207
  Serious: No
  Sender: FDA-Public Use
  Company Number: US-MALLINCKRODT-T201602156

PATIENT
  Sex: Male

DRUGS (1)
  1. FENTANYL TRANSDERMAL SYSTEM [Suspect]
     Active Substance: FENTANYL
     Indication: PAIN
     Dosage: 75 MCG/HR (UNKNOWN FREQUENCY)
     Route: 062
     Dates: start: 2014

REACTIONS (2)
  - Condition aggravated [Not Recovered/Not Resolved]
  - Lack of application site rotation [Recovered/Resolved]

NARRATIVE: CASE EVENT DATE: 2014
